FAERS Safety Report 9706735 (Version 1)
Quarter: 2013Q4

REPORT INFORMATION
  Report Type: Report from Study
  Country: US (occurrence: US)
  Receive Date: 20131125
  Receipt Date: 20131125
  Transmission Date: 20140711
  Serious: Yes (Hospitalization)
  Sender: FDA-Public Use
  Company Number: US-UCBSA-103841

PATIENT
  Age: 38 Year
  Sex: Female
  Weight: 58.8 kg

DRUGS (21)
  1. CIMZIA [Suspect]
     Indication: CROHN^S DISEASE
     Route: 058
     Dates: start: 20130828
  2. FOLIC ACID [Concomitant]
     Dates: start: 20130905
  3. XANAX [Concomitant]
     Dates: start: 2012
  4. BUSPAR [Concomitant]
  5. CELEXA [Concomitant]
     Dates: start: 201203
  6. CIPRO [Concomitant]
     Indication: CROHN^S DISEASE
     Dates: start: 20120624, end: 20120629
  7. CIPRO [Concomitant]
     Indication: CROHN^S DISEASE
     Dates: start: 20130913
  8. FLAGYL [Concomitant]
     Indication: CROHN^S DISEASE
     Dates: start: 20130911
  9. PREDNISONE [Concomitant]
     Indication: CROHN^S DISEASE
     Dates: start: 1993
  10. METHOTREXATE [Concomitant]
     Indication: CROHN^S DISEASE
     Dates: start: 20130904
  11. ZOFRAN [Concomitant]
     Dosage: 4MG PRN-WHEN NEEDED
     Route: 048
     Dates: start: 20131003
  12. OXYCODONE [Concomitant]
     Dosage: 5MG PRN
     Dates: start: 20131004, end: 201310
  13. OXYCODONE [Concomitant]
     Dosage: 5 MG
     Dates: start: 20131009
  14. LEVONORGESTERL-ETHINYL ESTRADIOL [Concomitant]
     Dosage: 1 QD
  15. LOPRESSOR [Concomitant]
     Route: 048
  16. METHYLPREDNISOLONE [Concomitant]
     Dates: start: 201202, end: 201202
  17. METHYLPREDNISOLONE [Concomitant]
     Dates: start: 201304, end: 201304
  18. METHYLPREDNISOLONE [Concomitant]
     Dates: start: 20131004
  19. TYLENOL [Concomitant]
     Dosage: 650 MG
     Dates: start: 20131013, end: 20131108
  20. NORTRIPTYLINE [Concomitant]
     Dosage: 20 MG
     Route: 048
     Dates: start: 20131016
  21. PENTAM [Concomitant]
     Dates: start: 20131009

REACTIONS (1)
  - Pyelonephritis acute [Recovered/Resolved]
